FAERS Safety Report 5871221-6 (Version None)
Quarter: 2008Q3

REPORT INFORMATION
  Report Type: 
  Country: None (occurrence: None)
  Receive Date: 20080829
  Receipt Date: 20071024
  Transmission Date: 20090109
  Serious: Yes (Hospitalization)
  Sender: FDA-Public Use
  Company Number: 2007-01039FE

PATIENT

DRUGS (4)
  1. CORTICOTROPIN [Suspect]
     Indication: DIAGNOSTIC PROCEDURE
     Dosage: 20 MCG ONCE
     Route: 042
  2. GONADOTROPIN RELEASING HORMONE (GNRH) [Suspect]
     Indication: DIAGNOSTIC PROCEDURE
     Dosage: 20 MCG ONCE
     Route: 042
  3. GONADOTROPIN RELEASING HORMONE (GNRH) [Suspect]
     Indication: DIAGNOSTIC PROCEDURE
     Dosage: 20 MCG ONCE
     Route: 042
  4. TRH ( ) ( THYROTROPHIN -RELEASING HORMONE) [Suspect]
     Indication: DIAGNOSTIC PROCEDURE
     Dosage: 100 MCG ONCE
     Route: 042

REACTIONS (4)
  - CHEST DISCOMFORT [None]
  - HEADACHE [None]
  - NAUSEA [None]
  - PITUITARY HAEMORRHAGE [None]
